FAERS Safety Report 22646917 (Version 4)
Quarter: 2024Q1

REPORT INFORMATION
  Report Type: Spontaneous
  Country: AU (occurrence: AU)
  Receive Date: 20230627
  Receipt Date: 20240202
  Transmission Date: 20240410
  Serious: Yes (Hospitalization, Other)
  Sender: FDA-Public Use
  Company Number: AU-TASMAN PHARMA, INC.-2023TSM00119

PATIENT
  Age: 72 Year
  Sex: Female
  Weight: 86 kg

DRUGS (19)
  1. CLOZAPINE [Suspect]
     Active Substance: CLOZAPINE
     Dosage: 150 MG
     Dates: start: 20220207, end: 20220220
  2. CLOZAPINE [Suspect]
     Active Substance: CLOZAPINE
     Dosage: 12.5 MG
     Dates: start: 20230403, end: 20230410
  3. CLOZAPINE [Suspect]
     Active Substance: CLOZAPINE
     Dosage: 75 MG
     Dates: start: 20230411, end: 20230417
  4. CLOZAPINE [Suspect]
     Active Substance: CLOZAPINE
     Dosage: 100 MG
     Dates: start: 20230418, end: 20230424
  5. CLOZAPINE [Suspect]
     Active Substance: CLOZAPINE
     Dosage: 12.5 MG
     Dates: start: 20230615, end: 20230619
  6. CLOZAPINE [Suspect]
     Active Substance: CLOZAPINE
     Dosage: 75 MG
     Dates: start: 20230620, end: 20230626
  7. CLOZAPINE [Suspect]
     Active Substance: CLOZAPINE
     Dosage: 125 MG
     Dates: start: 20230627, end: 20230703
  8. CLOZAPINE [Suspect]
     Active Substance: CLOZAPINE
     Dosage: 100 MG
     Dates: start: 20230704, end: 20230710
  9. CLOZAPINE [Suspect]
     Active Substance: CLOZAPINE
     Dosage: 125 MG
     Dates: start: 20231006, end: 20231030
  10. CLOZAPINE [Suspect]
     Active Substance: CLOZAPINE
     Dosage: 125 MG
     Dates: start: 20231126, end: 20231214
  11. CLOZAPINE [Suspect]
     Active Substance: CLOZAPINE
     Dosage: UNK
     Dates: start: 20240108, end: 20240114
  12. CLOZAPINE [Suspect]
     Active Substance: CLOZAPINE
     Dosage: 150 MG
     Dates: start: 20220221, end: 20220405
  13. CLOZAPINE [Suspect]
     Active Substance: CLOZAPINE
     Dosage: 150 MG
     Dates: start: 20220406, end: 20221113
  14. CLOZAPINE [Suspect]
     Active Substance: CLOZAPINE
     Dosage: 150 MG
     Dates: start: 20221215, end: 20230323
  15. CLOZAPINE [Suspect]
     Active Substance: CLOZAPINE
     Dosage: 100 MG
     Dates: start: 20230425, end: 20230611
  16. CLOZAPINE [Suspect]
     Active Substance: CLOZAPINE
     Dosage: 100 MG
     Dates: start: 20230711, end: 20230917
  17. CLOZAPINE [Suspect]
     Active Substance: CLOZAPINE
     Dosage: 125 MG
     Dates: start: 20230918, end: 20231005
  18. CLOZAPINE [Suspect]
     Active Substance: CLOZAPINE
     Dosage: 125 MG
     Dates: start: 20231031, end: 20231125
  19. CLOZAPINE [Suspect]
     Active Substance: CLOZAPINE
     Dosage: 150 MG
     Dates: start: 20221114, end: 20221214

REACTIONS (10)
  - Haematemesis [Unknown]
  - Upper gastrointestinal haemorrhage [Unknown]
  - Encephalopathy [Unknown]
  - Toxic encephalopathy [Unknown]
  - Hospitalisation [Unknown]
  - Gastrointestinal obstruction [Unknown]
  - Cardiac disorder [Unknown]
  - Treatment noncompliance [Recovered/Resolved]
  - Therapy interrupted [Recovered/Resolved]
  - Product dose omission issue [Recovered/Resolved]

NARRATIVE: CASE EVENT DATE: 20220201
